FAERS Safety Report 6423722-X (Version None)
Quarter: 2009Q4

REPORT INFORMATION
  Report Type: 
  Country: None (occurrence: None)
  Receive Date: 20091102
  Receipt Date: 20091018
  Transmission Date: 20100525
  Serious: Yes (Other)
  Sender: FDA-Public Use
  Company Number: US-PFIZER INC-2009290533

PATIENT
  Age: 41 Year
  Sex: Female

DRUGS (1)
  1. VARENICLINE TARTRATE [Suspect]

REACTIONS (2)
  - AGITATION [None]
  - HYPOMANIA [None]
